FAERS Safety Report 8609885-6 (Version None)
Quarter: 2012Q3

REPORT INFORMATION
  Report Type: 
  Country: None (occurrence: None)
  Receive Date: 20120821
  Receipt Date: 20120809
  Transmission Date: 20120928
  Serious: Yes (Hospitalization, Other)
  Sender: FDA-Public Use
  Company Number: US-ROCHE-1061187

PATIENT
  Sex: Male
  Weight: 88.53 kg

DRUGS (2)
  1. ACCUTANE [Suspect]
     Indication: ACNE
     Dates: start: 19890731, end: 19891201
  2. ACCUTANE [Suspect]
     Dates: start: 19900501, end: 19900615

REACTIONS (6)
  - COLITIS ULCERATIVE [None]
  - INFLAMMATORY BOWEL DISEASE [None]
  - MENTAL DISORDER [None]
  - ANAL FISTULA [None]
  - CERVICOBRACHIAL SYNDROME [None]
  - CARPAL TUNNEL SYNDROME [None]
